FAERS Safety Report 8829868 (Version 1)
Quarter: 2012Q4

REPORT INFORMATION
  Report Type: 
  Country: US (occurrence: US)
  Receive Date: 20121008
  Receipt Date: 20121008
  Transmission Date: 20130627
  Serious: Yes (Death)
  Sender: FDA-Public Use
  Company Number: US-ROCHE-1130915

PATIENT
  Sex: Male

DRUGS (14)
  1. RITUXAN [Suspect]
     Indication: CHRONIC LYMPHOCYTIC LEUKAEMIA
     Route: 065
  2. RITUXAN [Suspect]
     Indication: IDIOPATHIC THROMBOCYTOPENIC PURPURA
     Route: 042
  3. RITUXAN [Suspect]
     Indication: OFF LABEL USE
  4. BENADRYL [Concomitant]
     Route: 048
  5. HYDROCORTISONE [Concomitant]
     Route: 065
  6. TYLENOL [Concomitant]
     Route: 048
  7. CHLORAMBUCIL [Concomitant]
     Route: 065
     Dates: start: 19980928
  8. CHLORAMBUCIL [Concomitant]
     Route: 065
     Dates: start: 19981130, end: 19981203
  9. FLUDARABINE [Concomitant]
     Route: 065
  10. ETOPOSIDE [Concomitant]
     Route: 065
     Dates: start: 20000111
  11. METHYLPREDNISOLONE [Concomitant]
     Route: 065
     Dates: start: 20000111
  12. CYTARABINE [Concomitant]
     Route: 065
     Dates: start: 20000111
  13. CISPLATIN [Concomitant]
     Route: 065
     Dates: start: 20000111
  14. ALLOPURINOL [Concomitant]

REACTIONS (1)
  - Death [Fatal]
